FAERS Safety Report 15390507 (Version 1)
Quarter: 2018Q4

REPORT INFORMATION
  Report Type: Spontaneous
  Country: US (occurrence: US)
  Receive Date: 20180917
  Receipt Date: 20180917
  Transmission Date: 20190204
  Serious: Yes (Other)
  Sender: FDA-Public Use
  Company Number: US-AXELLIA-001964

PATIENT
  Age: 69 Year
  Sex: Male

DRUGS (3)
  1. ENOXAPARIN/ENOXAPARIN SODIUM [Suspect]
     Active Substance: ENOXAPARIN\ENOXAPARIN SODIUM
     Indication: EVIDENCE BASED TREATMENT
  2. VANCOMYCIN [Suspect]
     Active Substance: VANCOMYCIN
     Indication: EVIDENCE BASED TREATMENT
     Route: 042
  3. CEFTRIAXONE/CEFTRIAXONE SODIUM [Suspect]
     Active Substance: CEFTRIAXONE SODIUM
     Indication: EVIDENCE BASED TREATMENT
     Route: 042

REACTIONS (3)
  - Thrombocytopenia [Recovering/Resolving]
  - Propionibacterium infection [Unknown]
  - Anaemia [Recovering/Resolving]
